FAERS Safety Report 4343158-5 (Version None)
Quarter: 2004Q2

REPORT INFORMATION
  Report Type: 
  Country: None (occurrence: None)
  Receive Date: 20040416
  Receipt Date: 20040412
  Transmission Date: 20050107
  Serious: Yes (Death)
  Sender: FDA-Public Use
  Company Number: US-JNJFOC-20040402393

PATIENT
  Age: 69 Year
  Sex: Male
  Weight: 90.7194 kg

DRUGS (8)
  1. CISAPRIDE (CISAPRIDE) UNSPECIFIED [Suspect]
     Indication: GASTROINTESTINAL MOTILITY DISORDER
     Dosage: 20 MG, 4 IN 1 DAY, ORAL
     Route: 048
     Dates: start: 20010214, end: 20040407
  2. CISAPRIDE (CISAPRIDE) UNSPECIFIED [Suspect]
     Indication: GASTROOESOPHAGEAL REFLUX DISEASE
     Dosage: 20 MG, 4 IN 1 DAY, ORAL
     Route: 048
     Dates: start: 20010214, end: 20040407
  3. ACETYLSALICYLIC ACID SRT [Concomitant]
  4. HYDROCHLOROTHIAZIDE [Concomitant]
  5. SELEGILINE HYDROCHLORIDE (SELEGILINE HYDROCHLORIDE) [Concomitant]
  6. AMANTADINE HCL [Concomitant]
  7. OMEPRAZOLE [Concomitant]
  8. IRBESARTAN (IRBESARTAN) [Concomitant]

REACTIONS (1)
  - PARKINSON'S DISEASE [None]
